FAERS Safety Report 5824217-4 (Version None)
Quarter: 2008Q3

REPORT INFORMATION
  Report Type: 
  Country: None (occurrence: None)
  Receive Date: 20080718
  Receipt Date: 20080423
  Transmission Date: 20090109
  Serious: Yes (Other)
  Sender: FDA-Public Use
  Company Number: US-WYE-H03826608

PATIENT
  Age: 57 Year
  Sex: Female

DRUGS (1)
  1. ADVIL PM [Suspect]
     Indication: HYPERSENSITIVITY
     Dosage: 1 CAPLET AT NIGHT, ORAL
     Route: 048
     Dates: start: 20080416, end: 20080422

REACTIONS (3)
  - CONDITION AGGRAVATED [None]
  - DRUG INEFFECTIVE [None]
  - SINUS HEADACHE [None]
